FAERS Safety Report 5716422-2 (Version None)
Quarter: 2008Q2

REPORT INFORMATION
  Report Type: 
  Country: None (occurrence: None)
  Receive Date: 20080424
  Receipt Date: 20080415
  Transmission Date: 20081010
  Serious: Yes (Hospitalization)
  Sender: FDA-Public Use
  Company Number: IT-ASTRAZENECA-2008SE01979

PATIENT
  Age: 26749 Day
  Sex: Female

DRUGS (5)
  1. FASLODEX [Suspect]
     Indication: BREAST CANCER
     Route: 030
     Dates: start: 20071031, end: 20071129
  2. MS CONTIN [Concomitant]
     Route: 048
  3. LANOXIN [Concomitant]
     Route: 048
  4. MONOKET [Concomitant]
     Route: 048
  5. COUMADIN [Concomitant]

REACTIONS (1)
  - CARDIAC FAILURE [None]
